FAERS Safety Report 24091530 (Version 1)
Quarter: 2024Q3

REPORT INFORMATION
  Report Type: Spontaneous
  Country: GB (occurrence: GB)
  Receive Date: 20240715
  Receipt Date: 20240715
  Transmission Date: 20241017
  Serious: Yes (Other)
  Sender: VERTEX
  Company Number: None

PATIENT
  Age: 39 Year
  Sex: Female

DRUGS (15)
  1. ELEXACAFTOR\IVACAFTOR\TEZACAFTOR [Suspect]
     Active Substance: ELEXACAFTOR\IVACAFTOR\TEZACAFTOR
     Indication: Cystic fibrosis
     Dosage: 75MG IVACAFTOR/50MG TEZACAFTOR/100MG ELEXACAFTOR, 2 TABLETS DAILY
     Route: 048
     Dates: start: 20231030
  2. KALYDECO [Suspect]
     Active Substance: IVACAFTOR
     Indication: Cystic fibrosis
     Dosage: 1 TABLET AT NIGHT
     Route: 048
     Dates: start: 20231030
  3. CALCIUM CARBONATE\CHOLECALCIFEROL [Concomitant]
     Active Substance: CALCIUM CARBONATE\CHOLECALCIFEROL
     Indication: Vitamin supplementation
     Dosage: UNK
     Dates: start: 20190123
  4. VITAMIN E [Concomitant]
     Active Substance: .ALPHA.-TOCOPHEROL
     Indication: Vitamin supplementation
     Dosage: UNK
     Dates: start: 20070527
  5. CETIRIZINE [Concomitant]
     Active Substance: CETIRIZINE HYDROCHLORIDE
     Indication: Antiallergic therapy
     Dosage: UNK
     Dates: start: 20200427
  6. CITALOPRAM [Concomitant]
     Active Substance: CITALOPRAM\CITALOPRAM HYDROBROMIDE
     Indication: Depression
     Dosage: UNK
     Dates: start: 20120418
  7. TOBRAMYCIN [Concomitant]
     Active Substance: TOBRAMYCIN\TOBRAMYCIN SULFATE
     Indication: Cystic fibrosis
     Dosage: UNK
     Dates: start: 20120810
  8. COLOMYCIN [Concomitant]
     Indication: Cystic fibrosis
     Dosage: UNK
     Dates: start: 20070901
  9. CREON [Concomitant]
     Active Substance: PANCRELIPASE AMYLASE\PANCRELIPASE LIPASE\PANCRELIPASE PROTEASE
     Indication: Pancreatic enzyme replacement therapy
     Dosage: UNK
     Dates: start: 20090630
  10. FLUTICASONE FUROATE [Concomitant]
     Active Substance: FLUTICASONE FUROATE
     Indication: Sinusitis
     Dosage: UNK
     Dates: start: 20210428
  11. PULMOZYME [Concomitant]
     Active Substance: DORNASE ALFA
     Indication: Cystic fibrosis
     Dosage: UNK
     Dates: start: 20070817
  12. ESOMEPRAZOLE [Concomitant]
     Active Substance: ESOMEPRAZOLE
     Indication: Gastrooesophageal reflux disease
     Dosage: UNK
     Dates: start: 20220506
  13. ALBUTEROL [Concomitant]
     Active Substance: ALBUTEROL
     Indication: Cystic fibrosis
     Dosage: UNK
     Dates: start: 20090701
  14. SYMBICORT [Concomitant]
     Active Substance: BUDESONIDE\FORMOTEROL FUMARATE DIHYDRATE
     Indication: Cystic fibrosis
     Dosage: UNK
     Dates: start: 20090701
  15. DILTIAZEM [Concomitant]
     Active Substance: DILTIAZEM
     Indication: Blood pressure abnormal
     Dosage: UNK

REACTIONS (1)
  - Contusion [Recovering/Resolving]

NARRATIVE: CASE EVENT DATE: 20240705
